FAERS Safety Report 9781233 (Version 1)
Quarter: 2013Q4

REPORT INFORMATION
  Report Type: Spontaneous
  Country: US (occurrence: None)
  Receive Date: 20131223
  Receipt Date: 20131223
  Transmission Date: 20140711
  Serious: Yes (Other)
  Sender: FDA-Public Use
  Company Number: None

PATIENT
  Age: 5 Year
  Sex: Male
  Weight: 42.64 kg

DRUGS (2)
  1. LEXAPRO [Suspect]
     Indication: AFFECTIVE DISORDER
     Route: 048
     Dates: start: 2010
  2. LEXAPRO [Suspect]
     Indication: AUTISM
     Route: 048
     Dates: start: 2010

REACTIONS (2)
  - Drug ineffective [None]
  - Product substitution issue [None]
